FAERS Safety Report 14597122 (Version 10)
Quarter: 2019Q2

REPORT INFORMATION
  Report Type: Report from Study
  Country: IT (occurrence: IT)
  Receive Date: 20180305
  Receipt Date: 20190405
  Transmission Date: 20190711
  Serious: Yes (Life-Threatening, Hospitalization)
  Sender: FDA-Public Use
  Company Number: IT-ROCHE-1992384

PATIENT
  Age: 67 Year
  Sex: Female
  Weight: 68 kg

DRUGS (84)
  1. HYDROCORTISONE. [Concomitant]
     Active Substance: HYDROCORTISONE
     Indication: CHILLS
     Route: 065
     Dates: start: 20170909, end: 20170909
  2. PERFALGAN [Concomitant]
     Active Substance: ACETAMINOPHEN
     Indication: PAIN
  3. RED BLOOD CELLS [Concomitant]
     Active Substance: HUMAN RED BLOOD CELL
     Route: 065
     Dates: start: 20180226, end: 20180226
  4. MORPHINE [Concomitant]
     Active Substance: MORPHINE
     Indication: PAIN
  5. DOXORUBICIN [Suspect]
     Active Substance: DOXORUBICIN
     Indication: DIFFUSE LARGE B-CELL LYMPHOMA
     Dosage: MOST RECENT DOSE RECIEVED ON 30/AUG/2017, MOST RECENT DOSE PRIOR TO THROMBOCYTOPENIA: 05/JAN/2018 :
     Route: 042
     Dates: start: 20170830
  6. ACICLOVIR [Concomitant]
     Active Substance: ACYCLOVIR
     Indication: ANTIVIRAL PROPHYLAXIS
     Route: 065
     Dates: start: 20170830, end: 20180911
  7. SULFAMETHOXAZOLE/TRIMETHOPRIM [Concomitant]
     Active Substance: SULFAMETHOXAZOLE\TRIMETHOPRIM
     Indication: ANTIBIOTIC PROPHYLAXIS
     Route: 065
     Dates: start: 20170830, end: 20180911
  8. FILGRASTIM [Concomitant]
     Active Substance: FILGRASTIM
     Route: 065
     Dates: start: 20180104, end: 20180104
  9. CHLORPHENIRAMINE. [Concomitant]
     Active Substance: CHLORPHENIRAMINE
     Route: 065
     Dates: start: 20180115, end: 20180115
  10. METHYLPREDNISOLONE. [Concomitant]
     Active Substance: METHYLPREDNISOLONE
     Indication: INFUSION RELATED REACTION
     Route: 065
     Dates: start: 20170830, end: 20170830
  11. FENTANIL [Concomitant]
     Active Substance: FENTANYL
     Indication: STOMATITIS
     Route: 065
     Dates: start: 20170909, end: 20170913
  12. URSODEOXYCHOLIC ACID [Concomitant]
     Active Substance: URSODIOL
     Indication: GAMMA-GLUTAMYLTRANSFERASE INCREASED
     Route: 065
     Dates: start: 20170912, end: 20180131
  13. ATEZOLIZUMAB. [Suspect]
     Active Substance: ATEZOLIZUMAB
     Indication: DIFFUSE LARGE B-CELL LYMPHOMA
     Dosage: ON DAY 1 CYCLES 2-8, DURING INDUCTION TREATMENT, FOLLOWED BY 1200 MG IV ON DAY 1 OF CYCLES 9-25, DAT
     Route: 042
     Dates: start: 20170925
  14. PREDNISONE. [Suspect]
     Active Substance: PREDNISONE
     Indication: DIFFUSE LARGE B-CELL LYMPHOMA
     Dosage: MOST RECENT DOSE RECEIVED ON 07/SEP/2017 (6.9 MG/M2), MOST RECENT DOSE PRIOR TO THROMBOCYTOPENIA: 05
     Route: 048
     Dates: start: 20170830
  15. CYCLOPHOSPHAMIDE. [Suspect]
     Active Substance: CYCLOPHOSPHAMIDE
     Indication: DIFFUSE LARGE B-CELL LYMPHOMA
     Dosage: MOST RECENT DOSE RECEIVED ON 30/AUG/2017, MOST RECENT DOSE PRIOR TO THROMBOCYTOPENIA: 05/JAN/2018: 8
     Route: 042
     Dates: start: 20170830
  16. LANSOPRAZOLO [Concomitant]
     Active Substance: LANSOPRAZOLE
     Indication: GASTROINTESTINAL DISORDER PROPHYLAXIS
     Route: 065
     Dates: start: 20170816
  17. DELTACORTENE [Concomitant]
     Active Substance: PREDNISONE
     Route: 065
     Dates: start: 20170816, end: 20170908
  18. FILGRASTIM [Concomitant]
     Active Substance: FILGRASTIM
     Route: 065
     Dates: start: 20171218, end: 20171222
  19. CHLORPHENIRAMINE. [Concomitant]
     Active Substance: CHLORPHENIRAMINE
     Indication: PREMEDICATION
     Route: 065
     Dates: start: 20170904, end: 20170904
  20. CHLORPHENIRAMINE. [Concomitant]
     Active Substance: CHLORPHENIRAMINE
     Route: 065
     Dates: start: 20171221, end: 20171221
  21. CHLORPHENIRAMINE. [Concomitant]
     Active Substance: CHLORPHENIRAMINE
     Route: 065
     Dates: start: 20180102, end: 20180102
  22. CHLORPHENIRAMINE. [Concomitant]
     Active Substance: CHLORPHENIRAMINE
     Route: 065
     Dates: start: 20180202, end: 20180202
  23. RED BLOOD CELLS [Concomitant]
     Active Substance: HUMAN RED BLOOD CELL
     Route: 065
     Dates: start: 20171221, end: 20171221
  24. RED BLOOD CELLS [Concomitant]
     Active Substance: HUMAN RED BLOOD CELL
     Route: 065
     Dates: start: 20180123, end: 20180123
  25. MORPHINE [Concomitant]
     Active Substance: MORPHINE
     Indication: MUCOSAL INFLAMMATION
     Route: 065
     Dates: start: 20170909, end: 20170909
  26. EPOETIN ALFA [Concomitant]
     Active Substance: ERYTHROPOIETIN
     Indication: ANAEMIA
     Route: 065
     Dates: start: 20171227
  27. LEVOFLOXACIN. [Concomitant]
     Active Substance: LEVOFLOXACIN
     Indication: PYREXIA
     Route: 065
     Dates: start: 20171227, end: 20180106
  28. CYANOCOBALAMIN. [Concomitant]
     Active Substance: CYANOCOBALAMIN
     Indication: ANAEMIA
     Route: 065
     Dates: start: 20180105, end: 20180202
  29. VINCRISTINE [Suspect]
     Active Substance: VINCRISTINE
     Indication: DIFFUSE LARGE B-CELL LYMPHOMA
     Dosage: MOST RECENT DOSE RECEIVED ON30/AUG/2017 , MOST RECENT DOSE PRIOR TO THROMBOCYTOPENIA: 05/JAN/2018 :
     Route: 042
     Dates: start: 20170830
  30. LEVOTHYROXINE. [Concomitant]
     Active Substance: LEVOTHYROXINE
     Indication: HYPOTHYROIDISM
     Route: 065
     Dates: start: 201706
  31. BROMAZEPAM [Concomitant]
     Active Substance: BROMAZEPAM
     Indication: ANXIETY
  32. DELTACORTENE [Concomitant]
     Active Substance: PREDNISONE
     Route: 065
     Dates: start: 20180208
  33. CHLORPHENIRAMINE. [Concomitant]
     Active Substance: CHLORPHENIRAMINE
     Route: 065
     Dates: start: 20180123, end: 20180123
  34. RED BLOOD CELLS [Concomitant]
     Active Substance: HUMAN RED BLOOD CELL
     Route: 065
     Dates: start: 20171215, end: 20171215
  35. RED BLOOD CELLS [Concomitant]
     Active Substance: HUMAN RED BLOOD CELL
     Route: 065
     Dates: start: 20180102, end: 20180102
  36. RED BLOOD CELLS [Concomitant]
     Active Substance: HUMAN RED BLOOD CELL
     Route: 065
     Dates: start: 20180314, end: 20180314
  37. PLATELETS [Concomitant]
     Active Substance: HUMAN PLATELET, ALLOGENIC
     Indication: PANCYTOPENIA
     Route: 065
     Dates: start: 20170907, end: 20170909
  38. PLATELETS [Concomitant]
     Active Substance: HUMAN PLATELET, ALLOGENIC
     Route: 065
     Dates: start: 20180208, end: 20180208
  39. FILGRASTIM [Concomitant]
     Active Substance: FILGRASTIM
     Route: 065
     Dates: start: 20180112, end: 20180118
  40. CHLORPHENIRAMINE. [Concomitant]
     Active Substance: CHLORPHENIRAMINE
     Route: 065
     Dates: start: 20180208, end: 20180215
  41. PERFALGAN [Concomitant]
     Active Substance: ACETAMINOPHEN
     Indication: MUCOSAL INFLAMMATION
     Route: 065
     Dates: start: 20170908, end: 20170909
  42. RED BLOOD CELLS [Concomitant]
     Active Substance: HUMAN RED BLOOD CELL
     Indication: ANAEMIA
     Route: 065
     Dates: start: 20170908, end: 20170908
  43. RED BLOOD CELLS [Concomitant]
     Active Substance: HUMAN RED BLOOD CELL
     Route: 065
     Dates: start: 20180220, end: 20180220
  44. TRIMETON [Concomitant]
     Active Substance: CHLORPHENIRAMINE MALEATE
     Indication: PREMEDICATION
     Route: 065
     Dates: start: 20170909, end: 20170909
  45. FOLIC ACID. [Concomitant]
     Active Substance: FOLIC ACID
     Indication: FOLATE DEFICIENCY
     Route: 065
     Dates: start: 20180103, end: 20180202
  46. LEVOFLOXACIN. [Concomitant]
     Active Substance: LEVOFLOXACIN
     Route: 065
     Dates: start: 20180222, end: 20180226
  47. FLECAINIDE [Concomitant]
     Active Substance: FLECAINIDE
     Indication: SUPRAVENTRICULAR TACHYCARDIA
     Route: 065
     Dates: start: 20170816, end: 20170821
  48. CLEXANE [Concomitant]
     Active Substance: ENOXAPARIN SODIUM
     Indication: ANTICOAGULANT THERAPY
     Route: 065
     Dates: start: 20170915, end: 20180131
  49. ALLOPURINOL. [Concomitant]
     Active Substance: ALLOPURINOL
     Route: 065
     Dates: start: 20170816
  50. FILGRASTIM [Concomitant]
     Active Substance: FILGRASTIM
     Indication: NEUTROPENIA
     Route: 065
     Dates: start: 20170905, end: 20170907
  51. HYDROCORTISONE. [Concomitant]
     Active Substance: HYDROCORTISONE
     Indication: INFUSION RELATED REACTION
     Route: 065
     Dates: start: 20170830, end: 20170830
  52. PARACETAMOL [Concomitant]
     Active Substance: ACETAMINOPHEN
     Indication: INFUSION RELATED REACTION
     Route: 065
     Dates: start: 20170830, end: 20170830
  53. POTASSIUM CHLORIDE. [Concomitant]
     Active Substance: POTASSIUM CHLORIDE
     Indication: HYPOKALAEMIA
     Route: 065
     Dates: start: 20170915, end: 20170918
  54. PARENTERAL NUTRITION [Concomitant]
     Active Substance: AMINO ACIDS\DEXTROSE\ELECTROLYTES NOS
     Indication: STOMATITIS
     Route: 065
     Dates: start: 20170909, end: 20170911
  55. RED BLOOD CELLS [Concomitant]
     Active Substance: HUMAN RED BLOOD CELL
     Route: 065
     Dates: start: 20171227, end: 20171227
  56. RED BLOOD CELLS [Concomitant]
     Active Substance: HUMAN RED BLOOD CELL
     Route: 065
     Dates: start: 20180115, end: 20180115
  57. PLATELETS [Concomitant]
     Active Substance: HUMAN PLATELET, ALLOGENIC
     Route: 065
     Dates: start: 20180202, end: 20180202
  58. VASELINE OIL [Concomitant]
     Route: 065
     Dates: start: 20180208, end: 20180208
  59. CLEXANE [Concomitant]
     Active Substance: ENOXAPARIN SODIUM
     Indication: ATRIAL FIBRILLATION
     Route: 065
     Dates: start: 20180221
  60. VERAPAMIL [Concomitant]
     Active Substance: VERAPAMIL HYDROCHLORIDE
     Indication: SUPRAVENTRICULAR TACHYCARDIA
     Route: 065
     Dates: end: 20170816
  61. CHLORPHENIRAMINE. [Concomitant]
     Active Substance: CHLORPHENIRAMINE
     Route: 065
     Dates: start: 20171215, end: 20171215
  62. CHLORPHENIRAMINE. [Concomitant]
     Active Substance: CHLORPHENIRAMINE
     Route: 065
     Dates: start: 20180205, end: 20180205
  63. METHYLPREDNISOLONE. [Concomitant]
     Active Substance: METHYLPREDNISOLONE
     Indication: THROMBOCYTOPENIA
     Route: 065
     Dates: start: 20180216, end: 20180220
  64. RED BLOOD CELLS [Concomitant]
     Active Substance: HUMAN RED BLOOD CELL
     Route: 065
     Dates: start: 20180108, end: 20180108
  65. RED BLOOD CELLS [Concomitant]
     Active Substance: HUMAN RED BLOOD CELL
     Route: 065
     Dates: start: 20180130, end: 20180131
  66. RED BLOOD CELLS [Concomitant]
     Active Substance: HUMAN RED BLOOD CELL
     Route: 065
     Dates: start: 20180208, end: 20180208
  67. TRIMETON [Concomitant]
     Active Substance: CHLORPHENIRAMINE MALEATE
     Indication: CHILLS
     Route: 065
     Dates: start: 20170907, end: 20170907
  68. PLASIL [Concomitant]
     Active Substance: METOCLOPRAMIDE HYDROCHLORIDE
     Route: 065
     Dates: start: 20170907, end: 20170907
  69. EPOETIN ALFA [Concomitant]
     Active Substance: ERYTHROPOIETIN
     Route: 065
     Dates: start: 20171231, end: 20180202
  70. LEVOFLOXACIN. [Concomitant]
     Active Substance: LEVOFLOXACIN
     Indication: ANTIBIOTIC THERAPY
     Route: 065
     Dates: start: 20170822, end: 20170829
  71. POTASSIUM BICARBONATE/SODIUM ALGINATE [Concomitant]
     Active Substance: POTASSIUM BICARBONATE\SODIUM ALGINATE
     Indication: ABDOMINAL PAIN UPPER
     Route: 065
     Dates: start: 20170915, end: 20170915
  72. RITUXIMAB. [Suspect]
     Active Substance: RITUXIMAB
     Indication: DIFFUSE LARGE B-CELL LYMPHOMA
     Dosage: MOST RECENT DOSE RECEIVED ON 30/AUG/2017, MOST RECENT DOSE PRIOR TO THROMBOCYTOPENIA: 05/JAN/2018: 6
     Route: 042
     Dates: start: 20170830
  73. METOPROLOL. [Concomitant]
     Active Substance: METOPROLOL
     Indication: HYPERTENSION
     Route: 065
     Dates: start: 20170816
  74. FILGRASTIM [Concomitant]
     Active Substance: FILGRASTIM
     Route: 065
     Dates: start: 20171212, end: 20171214
  75. CHLORPHENIRAMINE. [Concomitant]
     Active Substance: CHLORPHENIRAMINE
     Route: 065
     Dates: start: 20171227, end: 20171227
  76. CHLORPHENIRAMINE. [Concomitant]
     Active Substance: CHLORPHENIRAMINE
     Route: 065
     Dates: start: 20180108, end: 20180108
  77. CHLORPHENIRAMINE. [Concomitant]
     Active Substance: CHLORPHENIRAMINE
     Route: 065
     Dates: start: 20180130, end: 20180131
  78. CHLORPHENIRAMINE. [Concomitant]
     Active Substance: CHLORPHENIRAMINE
     Route: 065
     Dates: start: 20180102, end: 20180102
  79. RED BLOOD CELLS [Concomitant]
     Active Substance: HUMAN RED BLOOD CELL
     Route: 065
     Dates: start: 20180202, end: 20180202
  80. RED BLOOD CELLS [Concomitant]
     Active Substance: HUMAN RED BLOOD CELL
     Route: 065
     Dates: start: 20180205, end: 20180205
  81. RED BLOOD CELLS [Concomitant]
     Active Substance: HUMAN RED BLOOD CELL
     Route: 065
     Dates: start: 20170904, end: 20170904
  82. PLATELETS [Concomitant]
     Active Substance: HUMAN PLATELET, ALLOGENIC
     Route: 065
     Dates: start: 20180205, end: 20180205
  83. LASIX [Concomitant]
     Active Substance: FUROSEMIDE
     Indication: POLYURIA
     Route: 065
     Dates: start: 20170910, end: 20170910
  84. OMEPRAZOLE. [Concomitant]
     Active Substance: OMEPRAZOLE
     Indication: GASTROINTESTINAL DISORDER PROPHYLAXIS
     Route: 065
     Dates: start: 20170907, end: 20170907

REACTIONS (2)
  - Thrombocytopenia [Recovered/Resolved]
  - Pancytopenia [Recovered/Resolved]

NARRATIVE: CASE EVENT DATE: 20170907
